FAERS Safety Report 6696535-1 (Version None)
Quarter: 2010Q2

REPORT INFORMATION
  Report Type: 
  Country: None (occurrence: None)
  Receive Date: 20100426
  Receipt Date: 20100421
  Transmission Date: 20101027
  Serious: Yes (Life-Threatening)
  Sender: FDA-Public Use
  Company Number: IT-JNJFOC-20100304096

PATIENT
  Age: 30 Year
  Sex: Female

DRUGS (4)
  1. HALDOL [Suspect]
     Indication: SELF INJURIOUS BEHAVIOUR
     Route: 048
  2. SEROQUEL [Suspect]
     Indication: SELF INJURIOUS BEHAVIOUR
     Route: 048
  3. TEGRETOL [Suspect]
     Indication: SELF INJURIOUS BEHAVIOUR
     Route: 048
  4. LORAZEPAM [Suspect]
     Indication: SELF INJURIOUS BEHAVIOUR
     Route: 048

REACTIONS (5)
  - COMA [None]
  - INTENTIONAL OVERDOSE [None]
  - SELF INJURIOUS BEHAVIOUR [None]
  - TACHYCARDIA [None]
  - VOMITING [None]
